FAERS Safety Report 9845802 (Version 2)
Quarter: 2015Q1

REPORT INFORMATION
  Report Type: Spontaneous
  Country: US (occurrence: US)
  Receive Date: 20140127
  Receipt Date: 20150106
  Transmission Date: 20150721
  Serious: No
  Sender: FDA-Public Use
  Company Number: US-PFIZER INC-2014024673

PATIENT
  Age: 67 Year
  Sex: Female
  Weight: 77.98 kg

DRUGS (5)
  1. NEURONTIN [Suspect]
     Active Substance: GABAPENTIN
     Indication: NEUROPATHY PERIPHERAL
     Dosage: UNK
     Dates: start: 200411
  2. NEURONTIN [Suspect]
     Active Substance: GABAPENTIN
     Dosage: UNK
     Dates: end: 201311
  3. NEURONTIN [Suspect]
     Active Substance: GABAPENTIN
     Dosage: 800 MG, 3X/DAY
  4. NEURONTIN [Suspect]
     Active Substance: GABAPENTIN
     Dosage: UNK (350 MG OR 375 MG)
  5. PRILOSEC [Concomitant]
     Active Substance: OMEPRAZOLE MAGNESIUM
     Indication: GASTRIC DISORDER
     Dosage: 20 MG, DAILY

REACTIONS (9)
  - Cognitive disorder [Unknown]
  - Memory impairment [Unknown]
  - Drug intolerance [Unknown]
  - Balance disorder [Recovering/Resolving]
  - Drug ineffective [Unknown]
  - Hypoaesthesia [Unknown]
  - Head discomfort [Recovering/Resolving]
  - Malaise [Unknown]
  - Mobility decreased [Recovering/Resolving]
